FAERS Safety Report 9857932 (Version 6)
Quarter: 2014Q3

REPORT INFORMATION
  Report Type: Report from Study
  Country: JP (occurrence: JP)
  Receive Date: 20140131
  Receipt Date: 20140711
  Transmission Date: 20150326
  Serious: Yes (Hospitalization)
  Sender: FDA-Public Use
  Company Number: JP-ROCHE-1340493

PATIENT
  Age: 65 Year
  Sex: Female
  Weight: 51.8 kg

DRUGS (13)
  1. CARBADOGEN [Concomitant]
     Indication: HYPERTENSION
     Route: 065
     Dates: start: 20110810
  2. CALONAL [Concomitant]
     Active Substance: ACETAMINOPHEN
     Route: 065
     Dates: start: 20110704
  3. PLACEBO [Suspect]
     Active Substance: UNSPECIFIED INGREDIENT
     Dosage: LOADING DOSE
     Route: 042
     Dates: start: 20110704
  4. ISODINE [Concomitant]
     Active Substance: POVIDONE-IODINE
     Indication: GINGIVITIS
     Route: 065
     Dates: start: 20121001
  5. MEIACT MS [Concomitant]
     Active Substance: CEFDITOREN PIVOXIL
     Indication: INFECTION
     Route: 065
     Dates: start: 20140128, end: 20140202
  6. TRASTUZUMAB EMTANSINE [Suspect]
     Active Substance: ADO-TRASTUZUMAB EMTANSINE
     Route: 042
     Dates: start: 20120316
  7. VOLTAREN SUPPOSITORY [Concomitant]
     Indication: BACK PAIN
     Route: 065
     Dates: start: 20140127, end: 20140127
  8. STRONGER NEO-MINOPHAGEN C [Concomitant]
     Active Substance: AMMONIUM GLYCYRRHIZATE\CYSTEINE HYDROCHLORIDE\GLYCINE
     Route: 065
     Dates: start: 20140127, end: 20140128
  9. TRASTUZUMAB EMTANSINE [Suspect]
     Active Substance: ADO-TRASTUZUMAB EMTANSINE
     Indication: BREAST CANCER METASTATIC
     Dosage: LAST DOSE OF 123 MG ON 22/APR/2013
     Route: 042
     Dates: start: 20110704
  10. CEFAMEZIN ALPHA [Concomitant]
     Active Substance: CEFAZOLIN SODIUM
     Indication: INFECTION PROPHYLAXIS
     Route: 065
     Dates: start: 20140127, end: 20140128
  11. PLACEBO [Suspect]
     Active Substance: UNSPECIFIED INGREDIENT
     Indication: BREAST CANCER METASTATIC
     Dosage: MAINTENANCE DOSE, LAST DOSE ON 14/JAN/2014
     Route: 042
  12. TRASTUZUMAB EMTANSINE [Suspect]
     Active Substance: ADO-TRASTUZUMAB EMTANSINE
     Route: 042
     Dates: start: 20130403
  13. TRASTUZUMAB [Suspect]
     Active Substance: TRASTUZUMAB
     Indication: BREAST CANCER METASTATIC
     Dosage: LAST DOSE OF 307.8 MG ON 14/JAN/2014
     Route: 042
     Dates: start: 20130603

REACTIONS (1)
  - Splenic artery aneurysm [Recovered/Resolved]

NARRATIVE: CASE EVENT DATE: 20140124
